FAERS Safety Report 5283951-8 (Version None)
Quarter: 2007Q2

REPORT INFORMATION
  Report Type: 
  Country: None (occurrence: None)
  Receive Date: 20070402
  Receipt Date: 20060724
  Transmission Date: 20071010
  Serious: Yes (Other)
  Sender: FDA-Public Use
  Company Number: US-PFIZER INC-2006082803

PATIENT
  Sex: Female
  Weight: 52.2 kg

DRUGS (1)
  1. XALATAN [Suspect]
     Indication: GLAUCOMA
     Route: 047

REACTIONS (1)
  - EPISTAXIS [None]
